FAERS Safety Report 25909047 (Version 1)
Quarter: 2025Q4

REPORT INFORMATION
  Report Type: Spontaneous
  Country: EU (occurrence: EU)
  Receive Date: 20251011
  Receipt Date: 20251011
  Transmission Date: 20260118
  Serious: Yes (Death)
  Sender: JOHNSON AND JOHNSON
  Company Number: EU-PEI-202500021569

PATIENT
  Age: 57 Year
  Sex: Male

DRUGS (1)
  1. CARVYKTI [Suspect]
     Active Substance: CILTACABTAGENE AUTOLEUCEL
     Indication: Plasma cell myeloma
     Dates: start: 20250721

REACTIONS (6)
  - Immune effector cell-associated neurotoxicity syndrome [Fatal]
  - Immune effector cell-associated haematotoxicity [Fatal]
  - Demyelinating polyneuropathy [Fatal]
  - Radiculopathy [Fatal]
  - Guillain-Barre syndrome [Fatal]
  - Mucormycosis [Fatal]

NARRATIVE: CASE EVENT DATE: 20250802
